FAERS Safety Report 21687900 (Version 2)
Quarter: 2022Q4

REPORT INFORMATION
  Report Type: Report from Study
  Country: US (occurrence: US)
  Receive Date: 20221206
  Receipt Date: 20221207
  Transmission Date: 20230113
  Serious: No
  Sender: FDA-Public Use
  Company Number: US-ABBVIE-4187378

PATIENT
  Sex: Female

DRUGS (2)
  1. HUMIRA [Suspect]
     Active Substance: ADALIMUMAB
     Indication: Hidradenitis
     Route: 058
     Dates: start: 20220927
  2. HUMIRA [Suspect]
     Active Substance: ADALIMUMAB
     Dosage: CITRATE FREE
     Route: 058

REACTIONS (4)
  - Influenza [Recovered/Resolved]
  - Respiratory tract infection [Not Recovered/Not Resolved]
  - Hidradenitis [Recovering/Resolving]
  - Weight increased [Not Recovered/Not Resolved]

NARRATIVE: CASE EVENT DATE: 20220101
